FAERS Safety Report 8056626-X (Version None)
Quarter: 2012Q1

REPORT INFORMATION
  Report Type: 
  Country: None (occurrence: None)
  Receive Date: 20120119
  Receipt Date: 20120111
  Transmission Date: 20120608
  Serious: Yes (Hospitalization, Other)
  Sender: FDA-Public Use
  Company Number: CHPA2012US001048

PATIENT
  Age: 58 Year
  Sex: Female
  Weight: 87.075 kg

DRUGS (3)
  1. EXCEDRIN (MIGRAINE) [Suspect]
     Dosage: UNK, UNK
     Route: 048
  2. VICODIN [Concomitant]
     Indication: MIGRAINE
     Dosage: UNK, UNK
     Route: 048
  3. EXCEDRIN (MIGRAINE) [Suspect]
     Indication: MIGRAINE
     Dosage: UNK, UNK
     Route: 048

REACTIONS (10)
  - ASTHENIA [None]
  - BURNING SENSATION [None]
  - NECK PAIN [None]
  - WEIGHT DECREASED [None]
  - GASTRIC ULCER [None]
  - VOMITING [None]
  - CHEST PAIN [None]
  - ABDOMINAL DISCOMFORT [None]
  - ABDOMINAL PAIN UPPER [None]
  - PAIN IN EXTREMITY [None]
